FAERS Safety Report 19159424 (Version 1)
Quarter: 2021Q2

REPORT INFORMATION
  Report Type: Spontaneous
  Country: US (occurrence: US)
  Receive Date: 20210420
  Receipt Date: 20210420
  Transmission Date: 20210717
  Serious: Yes (Other)
  Sender: FDA-Public Use
  Company Number: US-PFIZER INC-2021243969

PATIENT
  Sex: Female

DRUGS (1)
  1. DEPO?MEDROL [Suspect]
     Active Substance: METHYLPREDNISOLONE ACETATE
     Dosage: UNK

REACTIONS (6)
  - Spinal pain [Unknown]
  - Mobility decreased [Unknown]
  - Sensory loss [Unknown]
  - Injection site discomfort [Unknown]
  - Urticaria [Unknown]
  - Hypersensitivity [Unknown]
